FAERS Safety Report 8683430 (Version 3)
Quarter: 2013Q1

REPORT INFORMATION
  Report Type: Spontaneous
  Country: US (occurrence: US)
  Receive Date: 20120726
  Receipt Date: 20130328
  Transmission Date: 20140127
  Serious: Yes (Hospitalization, Other)
  Sender: FDA-Public Use
  Company Number: US-US-EMD SERONO, INC.-7081233

PATIENT
  Age: 58 Year
  Sex: Female

DRUGS (3)
  1. REBIF [Suspect]
     Indication: PRODUCT USED FOR UNKNOWN INDICATION
     Route: 058
     Dates: start: 20060818
  2. REBIF [Suspect]
     Route: 058
     Dates: start: 20110902, end: 201204
  3. REBIF [Suspect]
     Route: 058
     Dates: start: 20121130

REACTIONS (3)
  - Hepatic infection [Unknown]
  - Red blood cell count decreased [Unknown]
  - Liver function test abnormal [Unknown]
